FAERS Safety Report 6146419-2 (Version None)
Quarter: 2009Q2

REPORT INFORMATION
  Report Type: 
  Country: None (occurrence: None)
  Receive Date: 20090403
  Receipt Date: 20090403
  Transmission Date: 20091009
  Serious: Yes (Other)
  Sender: FDA-Public Use
  Company Number: None

PATIENT
  Sex: Female
  Weight: 82.5547 kg

DRUGS (1)
  1. ZOLPIDEM [Suspect]
     Indication: INSOMNIA
     Dosage: 10 MGM 1 AT BEDTIME ORAL
     Route: 048
     Dates: start: 20090201

REACTIONS (3)
  - MEMORY IMPAIRMENT [None]
  - MIDDLE INSOMNIA [None]
  - SLEEP-RELATED EATING DISORDER [None]
